FAERS Safety Report 12383857 (Version 1)
Quarter: 2016Q2

REPORT INFORMATION
  Report Type: Spontaneous
  Country: SE (occurrence: SE)
  Receive Date: 20160519
  Receipt Date: 20160519
  Transmission Date: 20160815
  Serious: Yes (Disabling)
  Sender: FDA-Public Use
  Company Number: SE-PFIZER INC-2016253138

PATIENT
  Age: 51 Year
  Sex: Male

DRUGS (14)
  1. XALKORI [Suspect]
     Active Substance: CRIZOTINIB
     Dosage: 250 MG, 2X/DAY
     Route: 048
     Dates: start: 20160212, end: 20160307
  2. OXYNORM [Concomitant]
     Active Substance: OXYCODONE HYDROCHLORIDE
     Dosage: UNK
  3. FENTANYL RATIOPHARM [Concomitant]
     Dosage: 50 MICROGRAM/HOUR
  4. NASONEX [Concomitant]
     Active Substance: MOMETASONE FUROATE
     Dosage: UNK
  5. OMEPRAZOL ACTAVIS [Concomitant]
     Active Substance: OMEPRAZOLE
     Dosage: 20 MG, UNK
  6. ONDANSETRON BLUEFISH [Concomitant]
     Dosage: 8 MG, UNK
  7. CILAXORAL [Concomitant]
     Dosage: 7.5 MG/ML, AS NEEDED
  8. MOXALOLE [Concomitant]
     Dosage: UNK, AS NEEDED
  9. CALCICHEW-D3 [Concomitant]
     Active Substance: CALCIUM\CHOLECALCIFEROL
     Dosage: UNK
  10. XALKORI [Suspect]
     Active Substance: CRIZOTINIB
     Indication: LUNG NEOPLASM MALIGNANT
     Dosage: 250 MG, 2X/DAY
     Route: 048
     Dates: start: 20150807, end: 20160118
  11. MYCOSTATIN [Concomitant]
     Active Substance: NYSTATIN
     Dosage: 100000 IU/ML, AS NEEDED
  12. LACTULOSE ARROW [Concomitant]
     Dosage: UNK, AS NEEDED
  13. NATRIUMKLORID [Concomitant]
     Dosage: 9 MG/ML, AS NEEDED
     Route: 051
  14. PRIMPERAN [Concomitant]
     Active Substance: METOCLOPRAMIDE HYDROCHLORIDE
     Dosage: 10 MG, UNK

REACTIONS (1)
  - Alveolitis [Recovered/Resolved with Sequelae]

NARRATIVE: CASE EVENT DATE: 20160113
